FAERS Safety Report 6578138-2 (Version None)
Quarter: 2010Q1

REPORT INFORMATION
  Report Type: 
  Country: None (occurrence: None)
  Receive Date: 20100211
  Receipt Date: 20100202
  Transmission Date: 20100710
  Serious: Yes (Life-Threatening)
  Sender: FDA-Public Use
  Company Number: IT-PFIZER INC-2010014764

PATIENT
  Age: 69 Year
  Sex: Male

DRUGS (2)
  1. ZAVEDOS [Suspect]
     Indication: ACUTE MYELOID LEUKAEMIA
     Dosage: 24 MG X DAY
     Route: 042
     Dates: start: 20090608, end: 20090610
  2. ARACYTIN [Suspect]
     Indication: ACUTE MYELOID LEUKAEMIA
     Dosage: 400 MG X DAY
     Route: 042
     Dates: start: 20090608, end: 20090614

REACTIONS (2)
  - ENTEROBACTER SEPSIS [None]
  - EPIDIDYMITIS [None]
